FAERS Safety Report 7199393-4 (Version None)
Quarter: 2010Q4

REPORT INFORMATION
  Report Type: 
  Country: None (occurrence: None)
  Receive Date: 20101228
  Receipt Date: 20101216
  Transmission Date: 20110411
  Serious: Yes (Hospitalization)
  Sender: FDA-Public Use
  Company Number: US-ELI_LILLY_AND_COMPANY-US201012004517

PATIENT
  Sex: Female
  Weight: 83.9 kg

DRUGS (10)
  1. PRASUGREL HYDROCHLORIDE [Suspect]
     Indication: ACUTE CORONARY SYNDROME
     Dosage: 10 MG, DAILY (1/D)
     Route: 065
     Dates: start: 20100326
  2. CLOPIDOGREL [Concomitant]
     Dosage: 450 MG, UNK
     Route: 065
     Dates: start: 20100322, end: 20100322
  3. ASPIRIN [Concomitant]
     Dosage: 81 MG, DAILY (1/D)
     Route: 048
     Dates: start: 20100506
  4. PRAVASTATIN [Concomitant]
     Indication: HYPERLIPIDAEMIA
     Dosage: 10 MG, DAILY (1/D)
     Route: 048
  5. CLONAZEPAM [Concomitant]
     Indication: BIPOLAR DISORDER
     Dosage: 1 MG, 2/D
     Route: 048
  6. HALOPERIDOL [Concomitant]
     Indication: BIPOLAR DISORDER
     Dosage: 1 D/F, DAILY (1/D)
     Route: 048
  7. DEPAKOTE [Concomitant]
     Indication: BIPOLAR DISORDER
     Dosage: 500 MG, DAILY (1/D)
     Route: 048
     Dates: start: 20100325
  8. COREG [Concomitant]
     Indication: HYPERTENSION
     Dosage: 6.25 MG, 2/D
     Route: 048
     Dates: start: 20100326
  9. CRESTOR [Concomitant]
     Indication: HYPERCHOLESTEROLAEMIA
     Dosage: 5 MG, DAILY (1/D)
     Route: 048
     Dates: start: 20100522
  10. EFFIENT [Concomitant]
     Indication: STENT PLACEMENT
     Dosage: 5 MG, DAILY (1/D)
     Route: 048
     Dates: start: 20100521

REACTIONS (1)
  - CARDIAC STRESS TEST ABNORMAL [None]
